FAERS Safety Report 7357962-2 (Version None)
Quarter: 2011Q1

REPORT INFORMATION
  Report Type: 
  Country: None (occurrence: None)
  Receive Date: 20110317
  Receipt Date: 20110315
  Transmission Date: 20110831
  Serious: Yes (Other)
  Sender: FDA-Public Use
  Company Number: US-PFIZER INC-2011057143

PATIENT
  Sex: Female
  Weight: 56.236 kg

DRUGS (4)
  1. ADVAIR DISKUS 100/50 [Concomitant]
     Dosage: UNK
  2. OMEPRAZOLE [Concomitant]
     Dosage: 20 MG, UNK
  3. LYRICA [Suspect]
     Indication: FIBROMYALGIA
     Dosage: 75 MG, 1X/DAY
     Route: 048
     Dates: start: 20110306
  4. MELOXICAM [Concomitant]
     Dosage: 15 MG, UNK

REACTIONS (6)
  - GAIT DISTURBANCE [None]
  - JOINT SWELLING [None]
  - PAIN [None]
  - OEDEMA PERIPHERAL [None]
  - DIZZINESS [None]
  - FEELING ABNORMAL [None]
